FAERS Safety Report 4400577-6 (Version None)
Quarter: 2004Q3

REPORT INFORMATION
  Report Type: 
  Country: None (occurrence: None)
  Receive Date: 20040716
  Receipt Date: 20040716
  Transmission Date: 20050211
  Serious: Yes (Hospitalization)
  Sender: FDA-Public Use
  Company Number: None

PATIENT
  Age: 84 Year
  Sex: Male
  Weight: 81.5 kg

DRUGS (1)
  1. WARFARIN SODIUM [Suspect]
     Indication: AORTIC VALVE REPLACEMENT
     Dosage: WARFARIN   QD  ORAL
     Route: 048
     Dates: start: 19950228, end: 20040715

REACTIONS (4)
  - BRADYCARDIA [None]
  - DRUG TOXICITY [None]
  - EPISTAXIS [None]
  - HAEMOPTYSIS [None]
